APPROVED DRUG PRODUCT: PACLITAXEL
Active Ingredient: PACLITAXEL
Strength: 100MG/VIAL
Dosage Form/Route: POWDER;INTRAVENOUS
Application: N211875 | Product #001 | TE Code: AB
Applicant: AMERICAN REGENT INC
Approved: Jul 27, 2022 | RLD: Yes | RS: Yes | Type: RX